FAERS Safety Report 21958408 (Version 1)
Quarter: 2023Q1

REPORT INFORMATION
  Report Type: Spontaneous
  Country: US (occurrence: US)
  Receive Date: 20230206
  Receipt Date: 20230206
  Transmission Date: 20230418
  Serious: No
  Sender: FDA-Public Use
  Company Number: US-BEH-2023154898

PATIENT
  Age: 73 Year
  Sex: Female

DRUGS (20)
  1. HIZENTRA [Suspect]
     Active Substance: HUMAN IMMUNOGLOBULIN G
     Indication: Immunodeficiency common variable
     Dosage: 7 GRAM, QW
     Route: 058
     Dates: start: 2018
  2. ZYRTEC [Concomitant]
     Active Substance: CETIRIZINE HYDROCHLORIDE
  3. FUROSEMIDE [Concomitant]
     Active Substance: FUROSEMIDE
  4. CEFDINIR [Concomitant]
     Active Substance: CEFDINIR
  5. METHYLPREDNISOLONE [Concomitant]
     Active Substance: METHYLPREDNISOLONE
  6. LORATADINE [Concomitant]
     Active Substance: LORATADINE
  7. CIPROFLOXACIN HYDROCHLORIDE [Concomitant]
     Active Substance: CIPROFLOXACIN HYDROCHLORIDE
  8. VITAMIN B12 [Concomitant]
     Active Substance: CYANOCOBALAMIN
  9. VITAMIN D NOS [Concomitant]
     Active Substance: VITAMIN D NOS
  10. .ALPHA.-TOCOPHEROL [Concomitant]
     Active Substance: .ALPHA.-TOCOPHEROL
  11. DILTIAZEM [Concomitant]
     Active Substance: DILTIAZEM
  12. SIMVASTATIN [Concomitant]
     Active Substance: SIMVASTATIN
  13. NAPROSYN [Concomitant]
     Active Substance: NAPROXEN
  14. ALBUTEROL [Concomitant]
     Active Substance: ALBUTEROL
  15. IPRATROPIUM [Concomitant]
     Active Substance: IPRATROPIUM
  16. PREDNISONE [Concomitant]
     Active Substance: PREDNISONE
  17. TRELEGY ELLIPTA [Concomitant]
     Active Substance: FLUTICASONE FUROATE\UMECLIDINIUM BROMIDE\VILANTEROL TRIFENATATE
  18. VENTOLIN HFA [Concomitant]
     Active Substance: ALBUTEROL SULFATE
  19. VITAMIN B1 [Concomitant]
     Active Substance: THIAMINE HYDROCHLORIDE
  20. VITAMIN C [Concomitant]
     Active Substance: ASCORBIC ACID

REACTIONS (9)
  - Respiratory tract infection [Recovering/Resolving]
  - Cough [Unknown]
  - Productive cough [Unknown]
  - Anxiety [Unknown]
  - Dyspnoea [Unknown]
  - Blood pressure systolic increased [Recovered/Resolved]
  - Feeling jittery [Unknown]
  - Nervousness [Unknown]
  - Hyperhidrosis [Unknown]

NARRATIVE: CASE EVENT DATE: 20230101
